FAERS Safety Report 5355444-0 (Version None)
Quarter: 2007Q2

REPORT INFORMATION
  Report Type: 
  Country: None (occurrence: None)
  Receive Date: 20070611
  Receipt Date: 20070611
  Transmission Date: 20071010
  Serious: Yes (Other)
  Sender: FDA-Public Use
  Company Number: None

PATIENT
  Age: 65 Year
  Sex: Female

DRUGS (1)
  1. AVELOX [Suspect]
     Dosage: 400 MG PO
     Route: 048
     Dates: start: 20070529

REACTIONS (2)
  - DERMATITIS EXFOLIATIVE [None]
  - URTICARIA [None]
